FAERS Safety Report 24679502 (Version 2)
Quarter: 2025Q3

REPORT INFORMATION
  Report Type: Spontaneous
  Country: US (occurrence: US)
  Receive Date: 20241129
  Receipt Date: 20250802
  Transmission Date: 20251021
  Serious: Yes (Other)
  Sender: ALEXION PHARMACEUTICALS
  Company Number: US-AstraZeneca-CH-00751494A

PATIENT
  Sex: Male

DRUGS (2)
  1. ANDEXXA [Suspect]
     Active Substance: ANDEXANET ALFA
     Indication: Haemorrhage
     Route: 065
  2. ELIQUIS [Concomitant]
     Active Substance: APIXABAN

REACTIONS (8)
  - Cerebrovascular accident [Unknown]
  - Thrombosis [Unknown]
  - Vision blurred [Unknown]
  - Fall [Unknown]
  - Memory impairment [Unknown]
  - Dyspnoea [Unknown]
  - Mental impairment [Unknown]
  - Visual field defect [Unknown]
